FAERS Safety Report 17075118 (Version 1)
Quarter: 2019Q4

REPORT INFORMATION
  Report Type: Spontaneous
  Country: FR (occurrence: FR)
  Receive Date: 20191126
  Receipt Date: 20191126
  Transmission Date: 20200122
  Serious: Yes (Other)
  Sender: FDA-Public Use
  Company Number: FR-PFIZER INC-2019507305

PATIENT
  Age: 51 Year
  Sex: Female

DRUGS (3)
  1. XELJANZ [Suspect]
     Active Substance: TOFACITINIB CITRATE
     Indication: RHEUMATOID ARTHRITIS
     Dosage: 10 MG, UNK
     Dates: start: 201904
  2. CORTANCYL [Concomitant]
     Active Substance: PREDNISONE
     Dosage: 10 MG, UNK
  3. METOJECT [Concomitant]
     Active Substance: METHOTREXATE SODIUM
     Dosage: 25 MG, UNK

REACTIONS (2)
  - Subarachnoid haemorrhage [Unknown]
  - Carotid artery aneurysm [Unknown]
